FAERS Safety Report 7215438-7 (Version None)
Quarter: 2011Q1

REPORT INFORMATION
  Report Type: 
  Country: None (occurrence: None)
  Receive Date: 20110104
  Receipt Date: 20110104
  Transmission Date: 20110831
  Serious: Yes (Hospitalization)
  Sender: FDA-Public Use
  Company Number: None

PATIENT
  Sex: Female
  Weight: 69 kg

DRUGS (2)
  1. VINCRISTINE [Suspect]
     Dosage: 1.5 MG/M2 ON DAYS 15 AND 22, IV
     Route: 042
  2. METHOTREXATE [Suspect]
     Dosage: 60 MG

REACTIONS (2)
  - LEUKOENCEPHALOPATHY [None]
  - MUSCULAR WEAKNESS [None]
